FAERS Safety Report 9094980 (Version 1)
Quarter: 2013Q1

REPORT INFORMATION
  Report Type: Spontaneous
  Country: JP (occurrence: JP)
  Receive Date: 20130201
  Receipt Date: 20130201
  Transmission Date: 20140127
  Serious: Yes (Hospitalization)
  Sender: FDA-Public Use
  Company Number: JP-ELI_LILLY_AND_COMPANY-JP201301007931

PATIENT
  Age: 93 Year
  Sex: Female

DRUGS (2)
  1. FORTEO [Suspect]
     Indication: OSTEOPOROSIS
     Dosage: 20 UG, QD
     Route: 058
     Dates: start: 20130112, end: 20130121
  2. RHEUMATREX                         /00113801/ [Concomitant]
     Indication: RHEUMATIC DISORDER
     Dosage: UNK, OTHER
     Route: 048
     Dates: start: 20130112, end: 201301

REACTIONS (1)
  - Oral mucosa erosion [Unknown]
